FAERS Safety Report 18944841 (Version 1)
Quarter: 2021Q1

REPORT INFORMATION
  Report Type: Spontaneous
  Country: FR (occurrence: FR)
  Receive Date: 20210226
  Receipt Date: 20210226
  Transmission Date: 20210420
  Serious: Yes (Death)
  Sender: FDA-Public Use
  Company Number: FR-ACCORD-218146

PATIENT
  Age: 76 Year
  Sex: Male

DRUGS (11)
  1. ESIDREX [Concomitant]
     Active Substance: HYDROCHLOROTHIAZIDE
     Dosage: STRENGTH: 25 MG
  2. LEVOFOLINATE [Suspect]
     Active Substance: LEVOLEUCOVORIN CALCIUM
     Indication: ADENOCARCINOMA PANCREAS
     Route: 051
     Dates: start: 20200309, end: 20200409
  3. KARDEGIC [Concomitant]
     Active Substance: ASPIRIN DL-LYSINE
     Dosage: STRENGTH: 75 MG
  4. RAMIPRIL. [Concomitant]
     Active Substance: RAMIPRIL
  5. INNOHEP [Concomitant]
     Active Substance: TINZAPARIN SODIUM
  6. IRINOTECAN [Suspect]
     Active Substance: IRINOTECAN
     Indication: ADENOCARCINOMA PANCREAS
     Route: 051
     Dates: start: 20200309, end: 20200409
  7. OXALIPLATIN. [Suspect]
     Active Substance: OXALIPLATIN
     Indication: ADENOCARCINOMA PANCREAS
     Route: 051
     Dates: start: 20200309, end: 20200409
  8. PANTOPRAZOLE [Concomitant]
     Active Substance: PANTOPRAZOLE
  9. DOLIPRANE [Concomitant]
     Active Substance: ACETAMINOPHEN
  10. FENOFIBRATE. [Concomitant]
     Active Substance: FENOFIBRATE
  11. FLUOROURACIL. [Suspect]
     Active Substance: FLUOROURACIL
     Indication: ADENOCARCINOMA PANCREAS
     Route: 051
     Dates: start: 20200309, end: 20200409

REACTIONS (5)
  - Hypovolaemic shock [Fatal]
  - Clostridium difficile infection [Fatal]
  - Pseudomembranous colitis [Fatal]
  - Septic shock [Fatal]
  - Off label use [Unknown]

NARRATIVE: CASE EVENT DATE: 20200317
